FAERS Safety Report 19318397 (Version 2)
Quarter: 2021Q4

REPORT INFORMATION
  Report Type: Report from Study
  Country: US (occurrence: US)
  Receive Date: 20210527
  Receipt Date: 20211027
  Transmission Date: 20220303
  Serious: Yes (Hospitalization)
  Sender: FDA-Public Use
  Company Number: US-ADAMAS PHARMA, LLC-2021ADA01064

PATIENT
  Age: 83 Year
  Sex: Male

DRUGS (18)
  1. GOCOVRI [Suspect]
     Active Substance: AMANTADINE
     Indication: Dyskinesia
     Dosage: 137 MG, 1X/DAY EVERY NIGHT, AT BEDTIME
     Route: 048
     Dates: start: 20210319, end: 20210325
  2. GOCOVRI [Suspect]
     Active Substance: AMANTADINE
     Dosage: 274 MG, 1X/DAY EVERY NIGHT, AT BEDTIME
     Route: 048
     Dates: start: 20210326, end: 202104
  3. GOCOVRI [Suspect]
     Active Substance: AMANTADINE
     Dosage: 137 MG, 1X/DAY EVERY NIGHT, AT BEDTIME
     Route: 048
     Dates: start: 202104, end: 202105
  4. GOCOVRI [Suspect]
     Active Substance: AMANTADINE
     Dosage: 274 MG, 1X/DAY EVERY NIGHT, AT BEDTIME
     Route: 048
     Dates: start: 202105, end: 202105
  5. GOCOVRI [Suspect]
     Active Substance: AMANTADINE
     Dosage: 137 MG, 1X/DAY EVERY NIGHT, AT BEDTIME
     Route: 048
     Dates: start: 202105
  6. ACETAMINOPHEN AND CODEINE [Concomitant]
     Active Substance: ACETAMINOPHEN\CODEINE PHOSPHATE
  7. FLOMAX [Concomitant]
     Active Substance: TAMSULOSIN HYDROCHLORIDE
  8. LOVASTATIN [Concomitant]
     Active Substance: LOVASTATIN
     Dosage: 20 MG, 1X/DAY AT BEDTIME
     Route: 048
  9. NEUPRO [Concomitant]
     Active Substance: ROTIGOTINE
     Dosage: 8 MG, 1X/DAY
     Route: 062
  10. PLAVIX [Concomitant]
     Active Substance: CLOPIDOGREL BISULFATE
     Dosage: 75 MG, 1X/DAY
     Route: 048
  11. RYTARY [Concomitant]
     Active Substance: CARBIDOPA\LEVODOPA
  12. RYTARY [Concomitant]
     Active Substance: CARBIDOPA\LEVODOPA
     Dosage: 2 CAPSULES EVERY 3-5 HOURS
     Route: 048
  13. FINASTERIDE [Concomitant]
     Active Substance: FINASTERIDE
     Dosage: 5 MG, 1X/DAY
     Route: 048
  14. UNSPECIFIED INGREDIENT [Concomitant]
     Active Substance: UNSPECIFIED INGREDIENT
  15. LOW DOSE ASPIRIN DELAYED RELEASE [Concomitant]
     Dosage: 81 MG, 1X/DAY
     Route: 048
  16. ALPRAZOLAM [Concomitant]
     Active Substance: ALPRAZOLAM
     Dosage: 0.25 MG, AS NEEDED
     Route: 048
  17. COENZYME Q10 [Concomitant]
     Active Substance: DIETARY SUPPLEMENT\UBIDECARENONE
  18. METOPROLOL SUCCINATE [Concomitant]
     Active Substance: METOPROLOL SUCCINATE
     Dosage: 25 MG, 1X/DAY
     Route: 048

REACTIONS (17)
  - Mental status changes [Recovered/Resolved]
  - Pneumonia aspiration [Unknown]
  - Acute myocardial infarction [Unknown]
  - Mastoiditis [Unknown]
  - Fall [Not Recovered/Not Resolved]
  - Faecaloma [Unknown]
  - Parkinson^s disease [Unknown]
  - Agitation [Unknown]
  - Urinary retention [Unknown]
  - Hypertension [Not Recovered/Not Resolved]
  - Conjunctivitis [Recovering/Resolving]
  - Renal disorder [Unknown]
  - Dry eye [Unknown]
  - Vision blurred [Not Recovered/Not Resolved]
  - Hallucination, visual [Unknown]
  - Urinary tract infection [Unknown]
  - Insomnia [Unknown]

NARRATIVE: CASE EVENT DATE: 20210101
